FAERS Safety Report 5290846-2 (Version None)
Quarter: 2007Q2

REPORT INFORMATION
  Report Type: 
  Country: None (occurrence: None)
  Receive Date: 20070409
  Receipt Date: 20070330
  Transmission Date: 20071010
  Serious: Yes (Life-Threatening, Hospitalization)
  Sender: FDA-Public Use
  Company Number: US-MERCK-0703USA04273

PATIENT
  Age: 65 Year
  Sex: Male

DRUGS (15)
  1. CANCIDAS [Suspect]
     Route: 042
     Dates: start: 20070305
  2. ANTIMICROBIAL (UNSPECIFIED) [Concomitant]
     Route: 065
  3. ALBUTEROL [Concomitant]
     Route: 065
  4. VANCOMYCIN [Concomitant]
     Route: 065
  5. NITROGLYCERIN [Concomitant]
     Route: 065
  6. OXYCODONE [Concomitant]
     Route: 065
  7. COUMADIN [Concomitant]
     Route: 065
  8. CAPTOPRIL MSD [Concomitant]
     Route: 065
  9. CEPHALEXIN [Concomitant]
     Route: 065
  10. ASPIRIN [Concomitant]
     Route: 065
  11. HYDROCORTISONE [Concomitant]
     Route: 065
  12. LEVOFLOXACIN [Concomitant]
     Route: 065
  13. METOCLOPRAMIDE [Concomitant]
     Route: 065
  14. ADAPIN [Concomitant]
     Route: 065
  15. MORPHINE [Concomitant]
     Route: 065

REACTIONS (1)
  - ORAL CANDIDIASIS [None]
